FAERS Safety Report 6359737-X (Version None)
Quarter: 2009Q3

REPORT INFORMATION
  Report Type: 
  Country: None (occurrence: None)
  Receive Date: 20090917
  Receipt Date: 20090911
  Transmission Date: 20100115
  Serious: Yes (Hospitalization, Disabling, Other)
  Sender: FDA-Public Use
  Company Number: US-MERCK-0909USA00249

PATIENT
  Age: 70 Year
  Sex: Female

DRUGS (9)
  1. FOSAMAX [Suspect]
     Indication: OSTEOPOROSIS
     Route: 048
     Dates: start: 19970901
  2. CALCIUM (UNSPECIFIED) [Concomitant]
     Route: 065
  3. OMEGA-3 MARINE TRIGLYCERIDES [Concomitant]
     Route: 065
  4. IRON (UNSPECIFIED) [Concomitant]
     Route: 065
  5. VITAMINS (UNSPECIFIED) [Concomitant]
     Route: 065
  6. ASPIRIN [Concomitant]
     Route: 065
  7. ANALGESIC (UNSPECIFIED) [Concomitant]
     Route: 065
  8. ADVIL [Concomitant]
     Route: 065
  9. VICODIN [Concomitant]
     Route: 065

REACTIONS (2)
  - FEMUR FRACTURE [None]
  - STRESS FRACTURE [None]
